FAERS Safety Report 22004510 (Version 3)
Quarter: 2023Q1

REPORT INFORMATION
  Report Type: Report from Study
  Country: US (occurrence: US)
  Receive Date: 20230217
  Receipt Date: 20230302
  Transmission Date: 20230417
  Serious: Yes (Hospitalization, Other)
  Sender: FDA-Public Use
  Company Number: US-002147023-NVSC2023US030981

PATIENT
  Age: 73 Year
  Sex: Female
  Weight: 57 kg

DRUGS (6)
  1. ILARIS [Suspect]
     Active Substance: CANAKINUMAB
     Indication: Pulmonary mass
     Dosage: 200 MG
     Route: 058
     Dates: start: 20220630
  2. ILARIS [Suspect]
     Active Substance: CANAKINUMAB
     Dosage: 200 MG
     Route: 058
     Dates: start: 20220721
  3. ILARIS [Suspect]
     Active Substance: CANAKINUMAB
     Dosage: 200 MG
     Route: 058
     Dates: start: 20220811
  4. ILARIS [Suspect]
     Active Substance: CANAKINUMAB
     Dosage: 200 MG
     Route: 058
     Dates: start: 20220901, end: 20220922
  5. ILARIS [Suspect]
     Active Substance: CANAKINUMAB
     Dosage: 200 MG
     Route: 058
     Dates: start: 20221103, end: 20221208
  6. ILARIS [Suspect]
     Active Substance: CANAKINUMAB
     Dosage: 200 MG
     Route: 058
     Dates: start: 20230209

REACTIONS (2)
  - Neutrophil count decreased [Not Recovered/Not Resolved]
  - Infusion site extravasation [Recovered/Resolved]

NARRATIVE: CASE EVENT DATE: 20230202
